FAERS Safety Report 7478225-0 (Version None)
Quarter: 2011Q2

REPORT INFORMATION
  Report Type: 
  Country: None (occurrence: None)
  Receive Date: 20110513
  Receipt Date: 20110504
  Transmission Date: 20111010
  Serious: Yes (Hospitalization, Other)
  Sender: FDA-Public Use
  Company Number: PHHY2011DE33434

PATIENT
  Age: 61 Year
  Sex: Female
  Weight: 70.6 kg

DRUGS (5)
  1. HERCEPTIN [Concomitant]
  2. AROMASIN [Concomitant]
  3. EXJADE [Suspect]
     Indication: MYELODYSPLASTIC SYNDROME
     Dosage: 500 MG, UNK
     Route: 048
     Dates: start: 20100510, end: 20110413
  4. HYPNOREX [Concomitant]
     Dosage: 400 MG,
     Route: 048
     Dates: start: 20070503, end: 20110413
  5. ANAFRANIL [Concomitant]
     Dosage: 25 MG, UNK
     Route: 048
     Dates: start: 20070503, end: 20110413

REACTIONS (6)
  - THROMBOCYTOPENIA [None]
  - EPISTAXIS [None]
  - MOUTH HAEMORRHAGE [None]
  - PNEUMONIA [None]
  - GENERAL PHYSICAL HEALTH DETERIORATION [None]
  - URINARY TRACT INFECTION [None]
